FAERS Safety Report 22655849 (Version 1)
Quarter: 2023Q2

REPORT INFORMATION
  Report Type: Spontaneous
  Country: US (occurrence: US)
  Receive Date: 20230629
  Receipt Date: 20230629
  Transmission Date: 20230722
  Serious: No
  Sender: FDA-Public Use
  Company Number: US-PFIZER INC-202300229880

PATIENT
  Age: 92 Year
  Sex: Male
  Weight: 94.35 kg

DRUGS (1)
  1. VYNDAMAX [Suspect]
     Active Substance: TAFAMIDIS
     Indication: Cardiac amyloidosis
     Dosage: 61 MG, 1X/DAY (RIGHT AFTER SUPPER)
     Route: 048
     Dates: start: 202303

REACTIONS (1)
  - Weight increased [Unknown]
